FAERS Safety Report 21059899 (Version 2)
Quarter: 2022Q3

REPORT INFORMATION
  Report Type: Spontaneous
  Country: US (occurrence: US)
  Receive Date: 20220708
  Receipt Date: 20220730
  Transmission Date: 20221026
  Serious: No
  Sender: FDA-Public Use
  Company Number: US-SANOFI-01168880

PATIENT
  Age: 67 Year
  Sex: Female
  Weight: 52.6 kg

DRUGS (2)
  1. LANTUS SOLOSTAR [Suspect]
     Active Substance: INSULIN GLARGINE
     Indication: Type 2 diabetes mellitus
     Dosage: 8-12 UNITS, QD
     Dates: start: 202112
  2. LANTUS SOLOSTAR [Suspect]
     Active Substance: INSULIN GLARGINE
     Dosage: 10-12 UNITS

REACTIONS (2)
  - Visual impairment [Unknown]
  - Incorrect dose administered [Unknown]
